FAERS Safety Report 20917871 (Version 1)
Quarter: 2022Q2

REPORT INFORMATION
  Report Type: Spontaneous
  Country: US (occurrence: US)
  Receive Date: 20220606
  Receipt Date: 20220606
  Transmission Date: 20220721
  Serious: No
  Sender: FDA-Public Use
  Company Number: US-ORGANON-O2206USA000110

PATIENT
  Sex: Male

DRUGS (1)
  1. ASMANEX [Suspect]
     Active Substance: MOMETASONE FUROATE
     Dosage: 220MCG-60 DOSE INHALER

REACTIONS (4)
  - Sinusitis [Unknown]
  - Cough [Unknown]
  - Product dose omission issue [Unknown]
  - Wrong technique in product usage process [Unknown]
